FAERS Safety Report 8163308-2 (Version None)
Quarter: 2012Q1

REPORT INFORMATION
  Report Type: 
  Country: None (occurrence: None)
  Receive Date: 20120224
  Receipt Date: 20110524
  Transmission Date: 20120608
  Serious: No
  Sender: FDA-Public Use
  Company Number: US-PFIZER INC-K201100657

PATIENT
  Age: 89 Year
  Sex: Female
  Weight: 63.492 kg

DRUGS (2)
  1. FLECTOR [Suspect]
     Indication: ARTHRALGIA
     Dosage: UNK PATCH, PRN
     Route: 061
  2. HYDROCHLOROTHIAZIDE [Concomitant]

REACTIONS (1)
  - ANGINA PECTORIS [None]
